FAERS Safety Report 9264115 (Version 1)
Quarter: 2013Q2

REPORT INFORMATION
  Report Type: Report from Study
  Country: US (occurrence: US)
  Receive Date: 20130430
  Receipt Date: 20130430
  Transmission Date: 20140414
  Serious: Yes (Hospitalization, Other)
  Sender: FDA-Public Use
  Company Number: US-ABBOTT-13P-163-1080166-00

PATIENT
  Sex: Female
  Weight: 64.92 kg

DRUGS (2)
  1. HUMIRA [Suspect]
     Indication: RHEUMATOID ARTHRITIS
     Dates: start: 2007, end: 2008
  2. HUMIRA [Suspect]
     Indication: RHEUMATOID ARTHRITIS
     Dates: start: 2008, end: 201302

REACTIONS (4)
  - Drug-induced liver injury [Unknown]
  - Hepatic enzyme increased [Recovering/Resolving]
  - Autoimmune disorder [Unknown]
  - Osteoporosis [Recovering/Resolving]
